FAERS Safety Report 22389971 (Version 7)
Quarter: 2023Q2

REPORT INFORMATION
  Report Type: Spontaneous
  Country: US (occurrence: US)
  Receive Date: 20230531
  Receipt Date: 20230608
  Transmission Date: 20230722
  Serious: No
  Sender: FDA-Public Use
  Company Number: US-Dermavant-000532

PATIENT
  Age: 45 Year
  Sex: Female

DRUGS (2)
  1. TAPINAROF [Suspect]
     Active Substance: TAPINAROF
     Indication: Dermatitis
     Dosage: AREA OF APPLICATION: ON THE FACE, AROUND THE EYES AND AROUND THE MOUTH
     Route: 061
     Dates: start: 202302
  2. Triamcinolone ointment [Concomitant]

REACTIONS (5)
  - Headache [Recovered/Resolved]
  - Off label use [Recovered/Resolved]
  - Application site irritation [Recovering/Resolving]
  - Photosensitivity reaction [Recovering/Resolving]
  - Swelling face [Recovering/Resolving]
